FAERS Safety Report 21554167 (Version 1)
Quarter: 2022Q4

REPORT INFORMATION
  Report Type: Spontaneous
  Country: US (occurrence: US)
  Receive Date: 20221104
  Receipt Date: 20221104
  Transmission Date: 20230113
  Serious: No
  Sender: FDA-Public Use
  Company Number: US-BRISTOL-MYERS SQUIBB COMPANY-2022-132444

PATIENT
  Age: 70 Year
  Sex: Female
  Weight: 51.89 kg

DRUGS (1)
  1. REVLIMID [Suspect]
     Active Substance: LENALIDOMIDE
     Indication: Plasma cell myeloma
     Dosage: AS DIRECTED
     Route: 048
     Dates: end: 20221011

REACTIONS (2)
  - Constipation [Unknown]
  - Diarrhoea [Unknown]
